FAERS Safety Report 12678658 (Version 3)
Quarter: 2016Q4

REPORT INFORMATION
  Report Type: Report from Study
  Country: CA (occurrence: CA)
  Receive Date: 20160823
  Receipt Date: 20161102
  Transmission Date: 20170207
  Serious: Yes (Other)
  Sender: FDA-Public Use
  Company Number: CA-UCBSA-2016008253

PATIENT
  Age: 29 Year
  Sex: Female
  Weight: 60 kg

DRUGS (6)
  1. ISONIAZIDE [Concomitant]
     Active Substance: ISONIAZID
     Indication: TUBERCULOSIS
     Dosage: UNK, 300 MG
     Dates: start: 201606
  2. CERTOLIZUMAB PEGOL ASP [Suspect]
     Active Substance: CERTOLIZUMAB PEGOL
     Dosage: 200 MG, EV 2 WEEKS(QOW)
     Route: 058
     Dates: start: 2016, end: 201606
  3. CERTOLIZUMAB PEGOL ASP [Suspect]
     Active Substance: CERTOLIZUMAB PEGOL
     Dosage: 200 MG, EV 2 WEEKS(QOW)
     Route: 058
     Dates: start: 20150702, end: 20160520
  4. SUPEUDOL [Concomitant]
     Active Substance: OXYCODONE HYDROCHLORIDE
     Indication: ANKYLOSING SPONDYLITIS
  5. CERTOLIZUMAB PEGOL ASP [Suspect]
     Active Substance: CERTOLIZUMAB PEGOL
     Indication: ANKYLOSING SPONDYLITIS
     Dosage: 400 MG, EV 2 WEEKS(QOW)
     Route: 058
     Dates: start: 20150521, end: 20150618
  6. PREDNISONE. [Concomitant]
     Active Substance: PREDNISONE
     Indication: ANKYLOSING SPONDYLITIS

REACTIONS (3)
  - Tuberculosis [Recovering/Resolving]
  - Pregnancy [Unknown]
  - Premature delivery [Unknown]

NARRATIVE: CASE EVENT DATE: 20160604
